FAERS Safety Report 4641197-8 (Version None)
Quarter: 2005Q2

REPORT INFORMATION
  Report Type: 
  Country: None (occurrence: None)
  Receive Date: 20050419
  Receipt Date: 20050419
  Transmission Date: 20051028
  Serious: Yes (Hospitalization, Other)
  Sender: FDA-Public Use
  Company Number: None

PATIENT
  Age: 8 Year
  Sex: Female
  Weight: 36.2878 kg

DRUGS (6)
  1. ZOLOFT [Suspect]
     Indication: ANXIETY
     Dosage: 50 MG ONCE A DAY ORAL
     Route: 048
     Dates: start: 20050318, end: 20050323
  2. ZOLOFT [Suspect]
     Indication: ATTENTION DEFICIT/HYPERACTIVITY DISORDER
     Dosage: 50 MG ONCE A DAY ORAL
     Route: 048
     Dates: start: 20050318, end: 20050323
  3. ZOLOFT [Suspect]
     Indication: ANXIETY
     Dosage: 100 MG ONCE A DAY ORAL
     Route: 048
     Dates: start: 20050324, end: 20050331
  4. ZOLOFT [Suspect]
     Indication: ATTENTION DEFICIT/HYPERACTIVITY DISORDER
     Dosage: 100 MG ONCE A DAY ORAL
     Route: 048
     Dates: start: 20050324, end: 20050331
  5. TRILEPTAL [Concomitant]
  6. ZYPREXA [Concomitant]

REACTIONS (5)
  - ABNORMAL BEHAVIOUR [None]
  - ANGER [None]
  - CONVERSION DISORDER [None]
  - MANIA [None]
  - SELF INJURIOUS BEHAVIOUR [None]
